FAERS Safety Report 5046637-0 (Version None)
Quarter: 2006Q3

REPORT INFORMATION
  Report Type: 
  Country: None (occurrence: None)
  Receive Date: 20060707
  Receipt Date: 20060707
  Transmission Date: 20061208
  Serious: Yes (Hospitalization)
  Sender: FDA-Public Use
  Company Number: None

PATIENT
  Age: 58 Year
  Sex: Male

DRUGS (6)
  1. HUMULIN 70/30 [Suspect]
     Indication: DIABETES MELLITUS INSULIN-DEPENDENT
     Dosage: -70 UNITS QAM, 48 UNITS QPM
     Dates: start: 20051103, end: 20060706
  2. . [Concomitant]
  3. AVANDIA [Concomitant]
  4. GABAPENTIN [Concomitant]
  5. MIRTAZAPINE [Concomitant]
  6. AQUAPHOR [Concomitant]

REACTIONS (6)
  - COLD SWEAT [None]
  - FEELING COLD [None]
  - HYPOGLYCAEMIA [None]
  - LOSS OF CONSCIOUSNESS [None]
  - OVERDOSE [None]
  - WEIGHT DECREASED [None]
